FAERS Safety Report 24046806 (Version 2)
Quarter: 2024Q3

REPORT INFORMATION
  Report Type: Spontaneous
  Country: DE (occurrence: DE)
  Receive Date: 20240703
  Receipt Date: 20240822
  Transmission Date: 20241016
  Serious: Yes (Death)
  Sender: AMGEN
  Company Number: DE-AMGEN-DEUSP2024128622

PATIENT
  Age: 82 Year
  Sex: Female
  Weight: 65 kg

DRUGS (1)
  1. TRASTUZUMAB [Suspect]
     Active Substance: TRASTUZUMAB
     Indication: Breast cancer
     Dosage: 8MG/KG = 512 MG ABS, DISCONTINUATION AFTER ABOUT 2/3 OF DOSE
     Route: 040
     Dates: start: 20240507, end: 20240507

REACTIONS (4)
  - Cardio-respiratory arrest [Fatal]
  - Hypersensitivity [Fatal]
  - Restlessness [Fatal]
  - Tremor [Fatal]

NARRATIVE: CASE EVENT DATE: 20240507
